FAERS Safety Report 24718055 (Version 1)
Quarter: 2024Q4

REPORT INFORMATION
  Report Type: Spontaneous
  Country: CA (occurrence: CA)
  Receive Date: 20241210
  Receipt Date: 20241210
  Transmission Date: 20250115
  Serious: Yes (Other)
  Sender: B BRAUN
  Company Number: CA-B.Braun Medical Inc.-2166846

PATIENT
  Age: 79 Year
  Sex: Male

DRUGS (5)
  1. HEPARIN SODIUM IN DEXTROSE [Suspect]
     Active Substance: HEPARIN SODIUM
  2. ELIQUIS [Concomitant]
     Active Substance: APIXABAN
  3. RISPERIDONE [Concomitant]
     Active Substance: RISPERIDONE
  4. QUETIAPINE [Concomitant]
     Active Substance: QUETIAPINE
  5. PREDNISONE [Concomitant]
     Active Substance: PREDNISONE

REACTIONS (3)
  - Lower gastrointestinal haemorrhage [Not Recovered/Not Resolved]
  - Polyp [Not Recovered/Not Resolved]
  - Melaena [Not Recovered/Not Resolved]
